FAERS Safety Report 6477447-5 (Version None)
Quarter: 2009Q4

REPORT INFORMATION
  Report Type: 
  Country: None (occurrence: None)
  Receive Date: 20091207
  Receipt Date: 20091104
  Transmission Date: 20100525
  Serious: Yes (Other)
  Sender: FDA-Public Use
  Company Number: ZA-SANOFI-AVENTIS-2009SA000895

PATIENT
  Age: 68 Year
  Sex: Female

DRUGS (1)
  1. INSULIN GLARGINE [Suspect]
     Indication: DIABETES MELLITUS
     Route: 058

REACTIONS (1)
  - MELANOCYTIC NAEVUS [None]
